FAERS Safety Report 6567837-4 (Version None)
Quarter: 2010Q1

REPORT INFORMATION
  Report Type: 
  Country: None (occurrence: None)
  Receive Date: 20100203
  Receipt Date: 20100125
  Transmission Date: 20100710
  Serious: Yes (Other)
  Sender: FDA-Public Use
  Company Number: US-JNJFOC-20100111194

PATIENT
  Age: 5 Month

DRUGS (3)
  1. CHILDREN'S TYLENOL [Suspect]
     Route: 048
  2. CHILDREN'S TYLENOL [Suspect]
     Indication: DRUG USE FOR UNKNOWN INDICATION
     Route: 048
  3. ORAJEL [Suspect]
     Indication: DRUG USE FOR UNKNOWN INDICATION

REACTIONS (4)
  - ANXIETY [None]
  - INJURY [None]
  - OVERDOSE [None]
  - PAIN [None]
